FAERS Safety Report 15570813 (Version 1)
Quarter: 2018Q4

REPORT INFORMATION
  Report Type: Spontaneous
  Country: US (occurrence: US)
  Receive Date: 20181031
  Receipt Date: 20181031
  Transmission Date: 20190205
  Serious: No
  Sender: FDA-Public Use
  Company Number: US-TEVA-2018-US-968856

PATIENT
  Age: 97 Year
  Sex: Female

DRUGS (2)
  1. CICLOPIROX. [Suspect]
     Active Substance: CICLOPIROX
     Indication: PRURITUS
     Dosage: 120 ML
     Dates: start: 20181002
  2. CICLOPIROX. [Suspect]
     Active Substance: CICLOPIROX
     Indication: DERMATITIS

REACTIONS (1)
  - Skin exfoliation [Unknown]

NARRATIVE: CASE EVENT DATE: 20181002
